FAERS Safety Report 15113954 (Version 1)
Quarter: 2018Q3

REPORT INFORMATION
  Report Type: Report from Study
  Country: DE (occurrence: DE)
  Receive Date: 20180706
  Receipt Date: 20180706
  Transmission Date: 20181010
  Serious: Yes (Other)
  Sender: FDA-Public Use
  Company Number: DE-TEVA-2018-DE-921759

PATIENT
  Age: 24 Year
  Sex: Female

DRUGS (15)
  1. RIVAROXABAN [Concomitant]
     Active Substance: RIVAROXABAN
     Dosage: EXPOSURE DURATION: 0?5 WEEKS
     Route: 065
  2. TORASEMIDE [Concomitant]
     Active Substance: TORSEMIDE
     Dosage: EXPOSURE DURATION: 0?14 WEEKS
     Route: 065
  3. SIMVASTATIN. [Concomitant]
     Active Substance: SIMVASTATIN
     Dosage: EXPOSURE DURATION: 0?14 WEEKS
     Route: 065
  4. TACROLIMUS. [Concomitant]
     Active Substance: TACROLIMUS
     Dosage: EXPOSURE DURATION: 0?14 WEEKS
     Route: 065
  5. ALISKIREN [Concomitant]
     Active Substance: ALISKIREN
     Dosage: EXPOSURE DURATION: 0?5 WEEKS
     Route: 065
  6. NICOTINE. [Concomitant]
     Active Substance: NICOTINE
     Dosage: EXPOSURE DURATION: 0?14 WEEKS
     Route: 065
  7. HYDROXYCHLOROQUINE [Concomitant]
     Active Substance: HYDROXYCHLOROQUINE
     Dosage: EXPOSURE DURATION: 0?14 WEEKS
     Route: 065
  8. ACETYLSALICYLIC ACID [Concomitant]
     Active Substance: ASPIRIN
     Dosage: EXPOSURE DURATION: 0?14 WEEKS
     Route: 065
  9. EZETIMIBE. [Concomitant]
     Active Substance: EZETIMIBE
     Dosage: EXPOSURE DURATION: 0?14 WEEKS
     Route: 065
  10. ENOXAPARIN [Concomitant]
     Active Substance: ENOXAPARIN
     Dosage: EXPOSURE DURATION: 0?14 WEEKS
     Route: 065
  11. RAMIPRIL. [Suspect]
     Active Substance: RAMIPRIL
     Indication: HYPERTENSION
     Dosage: EXPOSURE DURATION: 0?13+6 WEEKS
     Route: 065
  12. PREDNISOLONE. [Concomitant]
     Active Substance: PREDNISOLONE
     Dosage: EXPOSURE DURATION: 0?14 WEEKS
     Route: 065
  13. PANTOPRAZOLE [Concomitant]
     Active Substance: PANTOPRAZOLE
     Dosage: EXPOSURE DURATION: 0?14 WEEKS
     Route: 065
  14. METAMIZOLE [Concomitant]
     Active Substance: METAMIZOLE
     Dosage: EXPOSURE DURATION: 0?14 WEEKS
     Route: 065
  15. SALBUTAMOL [Concomitant]
     Active Substance: ALBUTEROL
     Dosage: EXPOSURE DURATION: 0?14 WEEKS
     Route: 065

REACTIONS (2)
  - Abortion induced [Unknown]
  - Exposure during pregnancy [Unknown]
